FAERS Safety Report 19261250 (Version 1)
Quarter: 2021Q2

REPORT INFORMATION
  Report Type: Spontaneous
  Country: IR (occurrence: IR)
  Receive Date: 20210515
  Receipt Date: 20210515
  Transmission Date: 20210717
  Serious: Yes (Other)
  Sender: FDA-Public Use
  Company Number: IR-ACCORD-224867

PATIENT
  Age: 8 Year
  Sex: Female

DRUGS (7)
  1. METHOTREXATE. [Suspect]
     Active Substance: METHOTREXATE
     Indication: B PRECURSOR TYPE ACUTE LEUKAEMIA
  2. ASPARAGINASE [Suspect]
     Active Substance: ASPARAGINASE
     Indication: B PRECURSOR TYPE ACUTE LEUKAEMIA
     Dosage: 6,000 UNITS/M2/DAY THRICE WEEKLY FOR 9 DOSES
     Route: 030
  3. DAUNORUBICIN [Suspect]
     Active Substance: DAUNORUBICIN
     Indication: B PRECURSOR TYPE ACUTE LEUKAEMIA
     Route: 042
  4. VINCRISTINE [Suspect]
     Active Substance: VINCRISTINE
     Indication: B PRECURSOR TYPE ACUTE LEUKAEMIA
     Route: 042
  5. METHYLPREDNISOLONE. [Suspect]
     Active Substance: METHYLPREDNISOLONE
     Indication: B PRECURSOR TYPE ACUTE LEUKAEMIA
  6. CYTARABINE/CYTARABINE HYDROCHLORIDE/CYTARABINE OCFOSFATE [Suspect]
     Active Substance: CYTARABINE
     Indication: B PRECURSOR TYPE ACUTE LEUKAEMIA
     Route: 037
  7. HYDROCORTISONE. [Suspect]
     Active Substance: HYDROCORTISONE
     Indication: B PRECURSOR TYPE ACUTE LEUKAEMIA

REACTIONS (1)
  - Blood smear test abnormal [Recovered/Resolved]
